FAERS Safety Report 10524038 (Version 1)
Quarter: 2014Q4

REPORT INFORMATION
  Report Type: Spontaneous
  Country: US (occurrence: None)
  Receive Date: 20141015
  Receipt Date: 20141015
  Transmission Date: 20150528
  Serious: No
  Sender: FDA-Public Use
  Company Number: None

PATIENT
  Age: 63 Year
  Sex: Female
  Weight: 61.69 kg

DRUGS (3)
  1. ENOXAPARIN 40MG/0.4 ML WATSON PHARMA [Suspect]
     Active Substance: ENOXAPARIN
     Indication: THROMBOSIS PROPHYLAXIS
     Dosage: ONE INJECTION, ONCE DAILY, GIVEN INTO/UNDER THE SKIN
  2. ENOXAPARIN 40MG/0.4 ML WATSON PHARMA [Suspect]
     Active Substance: ENOXAPARIN
     Indication: POSTOPERATIVE CARE
     Dosage: ONE INJECTION, ONCE DAILY, GIVEN INTO/UNDER THE SKIN
  3. ENOXAPARIN 40MG/0.4 ML WATSON PHARMA [Suspect]
     Active Substance: ENOXAPARIN
     Indication: RADICAL HYSTERECTOMY
     Dosage: ONE INJECTION, ONCE DAILY, GIVEN INTO/UNDER THE SKIN

REACTIONS (1)
  - Injection site hypersensitivity [None]

NARRATIVE: CASE EVENT DATE: 20140927
